FAERS Safety Report 16757917 (Version 1)
Quarter: 2019Q3

REPORT INFORMATION
  Report Type: Spontaneous
  Country: GB (occurrence: GB)
  Receive Date: 20190830
  Receipt Date: 20190830
  Transmission Date: 20191005
  Serious: Yes (Disabling, Other)
  Sender: FDA-Public Use
  Company Number: GB-SA-2019SA231719

PATIENT
  Age: 66 Year
  Sex: Male
  Weight: 81.59 kg

DRUGS (4)
  1. AMLODIPINE [Concomitant]
     Active Substance: AMLODIPINE BESYLATE
     Dosage: 5 MG,QD
     Route: 065
     Dates: start: 20190523
  2. INDAPAMIDE. [Suspect]
     Active Substance: INDAPAMIDE
     Indication: BLOOD PRESSURE INCREASED
     Dosage: 2.5 MG, UNK
     Route: 048
  3. CLINDAMYCIN. [Concomitant]
     Active Substance: CLINDAMYCIN
     Dosage: 60 MINUTES PRIOR TO DENTAL PROCEDURE
     Route: 048
     Dates: start: 20190315, end: 20190502
  4. WARFARIN [Concomitant]
     Active Substance: WARFARIN
     Dosage: FOLLOW ENCLOSED INSTRUCTIONS
     Route: 065
     Dates: start: 20190502

REACTIONS (1)
  - Myalgia [Recovered/Resolved]

NARRATIVE: CASE EVENT DATE: 20190405
